FAERS Safety Report 7836659-6 (Version None)
Quarter: 2011Q4

REPORT INFORMATION
  Report Type: 
  Country: None (occurrence: None)
  Receive Date: 20111024
  Receipt Date: 20110715
  Transmission Date: 20120403
  Serious: No
  Sender: FDA-Public Use
  Company Number: US-ABBOTT-11P-163-0839816-00

PATIENT
  Sex: Female
  Weight: 76.272 kg

DRUGS (2)
  1. LUPRON DEPOT [Suspect]
     Indication: ENDOMETRIOSIS
     Dates: start: 20110301
  2. SLEEPING PILL [Concomitant]
     Indication: INSOMNIA

REACTIONS (2)
  - NIGHT SWEATS [None]
  - PAIN [None]
